FAERS Safety Report 17865292 (Version 1)
Quarter: 2020Q2

REPORT INFORMATION
  Report Type: Spontaneous
  Country: US (occurrence: US)
  Receive Date: 20200604
  Receipt Date: 20200604
  Transmission Date: 20200714
  Serious: Yes (Other)
  Sender: FDA-Public Use
  Company Number: None

PATIENT
  Age: 14 Year
  Sex: Female
  Weight: 97.52 kg

DRUGS (1)
  1. DEPAKOTE ER- GENERIC [Suspect]
     Active Substance: DIVALPROEX SODIUM
     Indication: EPILEPSY
     Dosage: ?          OTHER DOSE:250MG-3TABS;?
     Route: 048
     Dates: start: 202001

REACTIONS (4)
  - Thermal burn [None]
  - Photosensitivity reaction [None]
  - Blister [None]
  - Swelling [None]

NARRATIVE: CASE EVENT DATE: 20200523
